FAERS Safety Report 8257987-9 (Version None)
Quarter: 2012Q2

REPORT INFORMATION
  Report Type: 
  Country: None (occurrence: None)
  Receive Date: 20120404
  Receipt Date: 20120323
  Transmission Date: 20120825
  Serious: Yes (Disabling, Other)
  Sender: FDA-Public Use
  Company Number: US-JNJFOC-20111006624

PATIENT
  Sex: Female
  Weight: 64.41 kg

DRUGS (7)
  1. REMICADE [Suspect]
     Route: 042
     Dates: start: 20110728, end: 20110728
  2. REMICADE [Suspect]
     Route: 042
     Dates: start: 20110106
  3. IMURAN [Suspect]
     Route: 065
     Dates: start: 20111023
  4. IMURAN [Suspect]
     Route: 065
  5. IMURAN [Suspect]
     Indication: CROHN'S DISEASE
     Route: 065
  6. REMICADE [Suspect]
     Indication: CROHN'S DISEASE
     Route: 042
     Dates: start: 20090501
  7. IMURAN [Suspect]
     Route: 065
     Dates: start: 20110713

REACTIONS (3)
  - AMNESIA [None]
  - DYSPHEMIA [None]
  - CROHN'S DISEASE [None]
